FAERS Safety Report 6106307-4 (Version None)
Quarter: 2009Q1

REPORT INFORMATION
  Report Type: 
  Country: None (occurrence: None)
  Receive Date: 20090306
  Receipt Date: 20090227
  Transmission Date: 20090719
  Serious: Yes (Hospitalization)
  Sender: FDA-Public Use
  Company Number: GB-ABBOTT-09P-167-0559853-00

PATIENT
  Age: 65 Year
  Sex: Male

DRUGS (10)
  1. VALPROATE SODIUM [Suspect]
     Indication: CONVULSION
     Route: 048
     Dates: start: 20081231, end: 20090201
  2. ASPIRIN [Concomitant]
     Indication: CARDIOMYOPATHY
     Route: 048
     Dates: start: 19990101, end: 19990101
  3. FUROSEMIDE [Concomitant]
     Indication: CARDIOMYOPATHY
     Route: 048
  4. NITROGLYCERIN [Concomitant]
     Indication: ANGINA PECTORIS
     Route: 048
     Dates: end: 20020101
  5. LISINOPRIL [Concomitant]
     Indication: CARDIOMYOPATHY
     Route: 048
     Dates: end: 20030101
  6. METOPROLOL [Concomitant]
     Indication: ANGINA PECTORIS
     Route: 048
     Dates: end: 20020101
  7. SERTRALINE [Concomitant]
     Indication: DEPRESSION
     Route: 048
     Dates: end: 19990101
  8. ACETAMINOPHEN [Concomitant]
     Indication: PAIN
     Route: 048
     Dates: start: 20090128
  9. DIHYDROCODEINE BITARTRATE INJ [Concomitant]
     Indication: PAIN
     Route: 048
     Dates: start: 20090121, end: 20090128
  10. SPIRONOLACTONE [Concomitant]
     Indication: CARDIOMYOPATHY
     Route: 048
     Dates: start: 20090131

REACTIONS (6)
  - BLOOD SODIUM DECREASED [None]
  - DYSPNOEA [None]
  - EFFUSION [None]
  - INSOMNIA [None]
  - PLEURAL EFFUSION [None]
  - URINE OUTPUT DECREASED [None]
